FAERS Safety Report 9421016 (Version 1)
Quarter: 2013Q3

REPORT INFORMATION
  Report Type: Other
  Country: US (occurrence: US)
  Receive Date: 20130725
  Receipt Date: 20130725
  Transmission Date: 20140515
  Serious: Yes (Other)
  Sender: FDA-Public Use
  Company Number: US-BRISTOL-MYERS SQUIBB COMPANY-19112366

PATIENT
  Age: 16 Year
  Sex: Male

DRUGS (1)
  1. TRIAMCINOLONE ACE INJ [Suspect]
     Indication: EPISTAXIS
     Dosage: INJ.
     Route: 045

REACTIONS (5)
  - Retinal artery embolism [Unknown]
  - Retinal deposits [Unknown]
  - Nausea [Unknown]
  - Vomiting [Unknown]
  - Eyelid ptosis [Unknown]
